FAERS Safety Report 19647991 (Version 1)
Quarter: 2021Q3

REPORT INFORMATION
  Report Type: Spontaneous
  Country: NL (occurrence: NL)
  Receive Date: 20210802
  Receipt Date: 20210802
  Transmission Date: 20211014
  Serious: Yes (Death)
  Sender: FDA-Public Use
  Company Number: NL-MYLANLABS-2021M1047462

PATIENT
  Age: 90 Year
  Sex: Female
  Weight: 56 kg

DRUGS (5)
  1. PARACETAMOL MYLAN [Suspect]
     Active Substance: ACETAMINOPHEN
     Indication: ILEUS
     Dosage: 1000 MG 4X A DAY
     Dates: start: 20210125
  2. MIDAZOLAM. [Suspect]
     Active Substance: MIDAZOLAM
     Indication: PALLIATIVE CARE
     Dosage: 6X DAILY 10MG
     Dates: start: 20210127
  3. MORFINE [Suspect]
     Active Substance: MORPHINE
     Indication: ILEUS
     Dosage: 1 DOSAGE FORM (INJECTION FLUID, 10 MG/ML (MILLIGRAMS PERMILLILITER)
     Dates: start: 20210125
  4. COMIRNATY [Suspect]
     Active Substance: TOZINAMERAN
     Indication: COVID-19 IMMUNISATION
     Dosage: 1 DOSAGE FORM
     Dates: start: 20210127
  5. MORFINE [Suspect]
     Active Substance: MORPHINE
     Indication: PNEUMONIA

REACTIONS (1)
  - Death [Fatal]

NARRATIVE: CASE EVENT DATE: 20210202
